FAERS Safety Report 15550559 (Version 6)
Quarter: 2019Q2

REPORT INFORMATION
  Report Type: Report from Study
  Country: US (occurrence: US)
  Receive Date: 20181025
  Receipt Date: 20190416
  Transmission Date: 20190711
  Serious: Yes (Other)
  Sender: FDA-Public Use
  Company Number: US-GILEAD-2018-0370943

PATIENT
  Age: 28 Year
  Sex: Female

DRUGS (7)
  1. AMBRISENTAN [Suspect]
     Active Substance: AMBRISENTAN
     Indication: PRODUCT USED FOR UNKNOWN INDICATION
     Dosage: 10 MG, QD
     Route: 065
     Dates: start: 20150212
  2. ADCIRCA [Concomitant]
     Active Substance: TADALAFIL
  3. FLOLAN [Concomitant]
     Active Substance: EPOPROSTENOL SODIUM
  4. VELETRI [Concomitant]
     Active Substance: EPOPROSTENOL
  5. WARFARIN [Concomitant]
     Active Substance: WARFARIN
  6. AMLODIPINE [Concomitant]
     Active Substance: AMLODIPINE BESYLATE
  7. REMODULIN [Concomitant]
     Active Substance: TREPROSTINIL
     Dosage: 48 NG/KG/MIN
     Route: 058

REACTIONS (10)
  - Infusion site warmth [Unknown]
  - Infusion site induration [Not Recovered/Not Resolved]
  - Infusion site erythema [Unknown]
  - Infusion site swelling [Unknown]
  - Infusion site haemorrhage [Unknown]
  - Vascular device infection [Unknown]
  - Flushing [Unknown]
  - Infusion site pain [Unknown]
  - Dysphonia [Not Recovered/Not Resolved]
  - Thyroid disorder [Recovering/Resolving]
